FAERS Safety Report 7318335-1 (Version None)
Quarter: 2011Q1

REPORT INFORMATION
  Report Type: 
  Country: None (occurrence: None)
  Receive Date: 20110218
  Receipt Date: 20110218
  Transmission Date: 20110831
  Serious: Yes (Hospitalization)
  Sender: FDA-Public Use
  Company Number: None

PATIENT
  Age: 55 Year
  Sex: Female

DRUGS (4)
  1. ASPIRIN [Concomitant]
  2. ANCEF [Suspect]
     Indication: BACTERAEMIA
     Dosage: IV RECENT
     Route: 042
  3. RIFAMPIN [Suspect]
     Indication: BACTERAEMIA
     Dosage: IV RECENT
     Route: 042
  4. M.V.I. [Concomitant]

REACTIONS (4)
  - PYREXIA [None]
  - THROMBOCYTOPENIA [None]
  - RASH [None]
  - PNEUMONIA [None]
